FAERS Safety Report 9933550 (Version 1)
Quarter: 2014Q1

REPORT INFORMATION
  Report Type: Report from Study
  Country: US (occurrence: US)
  Receive Date: 20140228
  Receipt Date: 20140228
  Transmission Date: 20141002
  Serious: No
  Sender: FDA-Public Use
  Company Number: US-MYLANLABS-2013S1023910

PATIENT
  Age: 17 Year
  Sex: Male

DRUGS (1)
  1. AMNESTEEM CAPSULES [Suspect]
     Route: 048
     Dates: start: 20131017

REACTIONS (4)
  - Malaise [Not Recovered/Not Resolved]
  - Vomiting [Not Recovered/Not Resolved]
  - Flushing [Not Recovered/Not Resolved]
  - Swelling face [Not Recovered/Not Resolved]
